FAERS Safety Report 4766698-3 (Version None)
Quarter: 2005Q3

REPORT INFORMATION
  Report Type: 
  Country: None (occurrence: None)
  Receive Date: 20050906
  Receipt Date: 20050819
  Transmission Date: 20060218
  Serious: Yes (Death, Hospitalization)
  Sender: FDA-Public Use
  Company Number: WSDF 287

PATIENT
  Age: 75 Year
  Sex: Male
  Weight: 72.3 kg

DRUGS (5)
  1. WINRHO SDF [Suspect]
     Indication: IDIOPATHIC THROMBOCYTOPENIC PURPURA
     Dosage: 48.4 UG/KG (3500UG), ONCE, IV
     Route: 042
     Dates: start: 20020718
  2. NORVASC [Concomitant]
  3. ALTACE [Concomitant]
  4. FOSAMAX [Concomitant]
  5. PREDNISONE [Concomitant]

REACTIONS (12)
  - ACUTE RESPIRATORY DISTRESS SYNDROME [None]
  - ANAEMIA HAEMOLYTIC AUTOIMMUNE [None]
  - BACK PAIN [None]
  - CARDIO-RESPIRATORY ARREST [None]
  - COLD SWEAT [None]
  - DISSEMINATED INTRAVASCULAR COAGULATION [None]
  - FEELING COLD [None]
  - HYPERHIDROSIS [None]
  - HYPOTENSION [None]
  - MYOCARDIAL INFARCTION [None]
  - RENAL IMPAIRMENT [None]
  - SPINAL CORD COMPRESSION [None]
